FAERS Safety Report 5086134-X (Version None)
Quarter: 2006Q3

REPORT INFORMATION
  Report Type: 
  Country: None (occurrence: None)
  Receive Date: 20060818
  Receipt Date: 20060808
  Transmission Date: 20061208
  Serious: Yes (Life-Threatening, Hospitalization, Other)
  Sender: FDA-Public Use
  Company Number: 2006090105

PATIENT
  Age: 75 Year
  Sex: Male

DRUGS (4)
  1. LYRICA [Suspect]
     Indication: ARACHNOIDITIS
     Dosage: 300 MG (150 MG, 2 IN 1 D), ORAL
     Route: 048
     Dates: start: 20051213, end: 20060304
  2. OXAZEPAM [Concomitant]
  3. PANTOPRAZOLE SODIUM [Concomitant]
  4. CODEINE PHOSPHATE             (CODEINE PHOSPHATE) [Concomitant]

REACTIONS (14)
  - AMNESIA [None]
  - CHILLS [None]
  - COLD SWEAT [None]
  - EPISTAXIS [None]
  - GASTROOESOPHAGEAL REFLUX DISEASE [None]
  - HAEMOGLOBIN DECREASED [None]
  - HAEMOPTYSIS [None]
  - HYPOAESTHESIA [None]
  - OEDEMA PERIPHERAL [None]
  - PALLOR [None]
  - SKIN DISCOLOURATION [None]
  - THROAT IRRITATION [None]
  - TREMOR [None]
  - ULCER [None]
